FAERS Safety Report 8988009 (Version 2)
Quarter: 2013Q1

REPORT INFORMATION
  Report Type: Spontaneous
  Country: US (occurrence: US)
  Receive Date: 20121227
  Receipt Date: 20130103
  Transmission Date: 20140127
  Serious: Yes (Life-Threatening, Other)
  Sender: FDA-Public Use
  Company Number: US-PFIZER INC-2012313039

PATIENT
  Age: 65 Year
  Sex: Female

DRUGS (17)
  1. LISINOPRIL [Suspect]
     Dosage: 40 MG, DAILY
     Route: 065
     Dates: start: 2001
  2. IBUPROFEN [Suspect]
     Dosage: 600 MG, THREE TIMES DAILY AS NEEDED
     Route: 065
  3. MOXIFLOXACIN [Suspect]
     Indication: UPPER RESPIRATORY TRACT INFECTION
     Dosage: UNK
     Route: 065
  4. ASPIRIN [Suspect]
     Dosage: 81 MG, DAILY
     Route: 065
  5. ASPIRIN [Suspect]
     Dosage: 325 MG,1 D
     Route: 065
  6. AMLODIPINE [Concomitant]
     Dosage: 5 MG, DAILY
     Route: 065
  7. METOPROLOL TARTRATE [Concomitant]
     Dosage: 12.5 MG, 2X/DAY
     Route: 065
  8. HYDROCHLOROTHIAZIDE [Concomitant]
     Dosage: 25 MG, DAILY
     Route: 065
  9. SIMVASTATIN [Concomitant]
     Dosage: 40 MG, DAILY
     Route: 065
  10. SIMVASTATIN [Concomitant]
     Dosage: 80 MG,1 D
  11. GLIPIZIDE [Concomitant]
     Dosage: 5 MG, BEFORE BREAKFAST
     Route: 065
  12. BUPROPION [Concomitant]
     Dosage: 150 MG, DAILY
     Route: 065
  13. ALPRAZOLAM [Concomitant]
     Dosage: 0.25 MG, 2X/DAY
     Route: 065
  14. METHOCARBAMOL [Concomitant]
     Dosage: 500 MG, DAILY
     Route: 065
  15. CALCIUM WITH VITAMIN D [Concomitant]
     Dosage: UNK, DAILY
     Route: 065
  16. ALBUTEROL [Concomitant]
     Indication: PRODUCT USED FOR UNKNOWN INDICATION
     Dosage: 2 PUFFS, EVERY 6 HOURS AS NEEDED
     Route: 065
  17. PREDNISONE [Concomitant]
     Indication: UPPER RESPIRATORY TRACT INFECTION
     Dosage: UNK
     Route: 065

REACTIONS (1)
  - Angioedema [Recovered/Resolved]
